FAERS Safety Report 14142644 (Version 1)
Quarter: 2017Q4

REPORT INFORMATION
  Report Type: Spontaneous
  Country: AU (occurrence: AU)
  Receive Date: 20171030
  Receipt Date: 20171030
  Transmission Date: 20180321
  Serious: Yes (Other)
  Sender: FDA-Public Use
  Company Number: AU-PFIZER INC-2017459447

PATIENT
  Age: 54 Year
  Sex: Male

DRUGS (1)
  1. EFFEXOR XR [Suspect]
     Active Substance: VENLAFAXINE HYDROCHLORIDE
     Indication: ANALGESIC THERAPY
     Dosage: 300 MG, UNK
     Dates: start: 2007

REACTIONS (10)
  - Gastrointestinal haemorrhage [Unknown]
  - Malaise [Unknown]
  - Hyperhidrosis [Unknown]
  - Nausea [Unknown]
  - Intentional product misuse [Unknown]
  - Psychotic disorder [Unknown]
  - Homicidal ideation [Unknown]
  - Hernia [Unknown]
  - Gastrointestinal disorder [Unknown]
  - Suicidal ideation [Unknown]
